FAERS Safety Report 8978936 (Version 2)
Quarter: 2013Q1

REPORT INFORMATION
  Report Type: Spontaneous
  Country: US (occurrence: US)
  Receive Date: 20121221
  Receipt Date: 20130110
  Transmission Date: 20140127
  Serious: Yes (Other)
  Sender: FDA-Public Use
  Company Number: US-UCBSA-073487

PATIENT
  Age: 25 Year
  Sex: 0

DRUGS (3)
  1. CIMZIA [Suspect]
     Indication: CROHN^S DISEASE
     Dates: start: 2009
  2. METHOTREXATE [Concomitant]
  3. LAMOTIL [Concomitant]

REACTIONS (4)
  - Joint swelling [Unknown]
  - White blood cell count increased [Unknown]
  - Pyrexia [Unknown]
  - Crohn^s disease [Unknown]
